FAERS Safety Report 11806670 (Version 1)
Quarter: 2015Q4

REPORT INFORMATION
  Report Type: Spontaneous
  Country: US (occurrence: US)
  Receive Date: 20151207
  Receipt Date: 20151207
  Transmission Date: 20160305
  Serious: No
  Sender: FDA-Public Use
  Company Number: US-GLAXOSMITHKLINE-US2015153835

PATIENT
  Age: 59 Year
  Sex: Female

DRUGS (1)
  1. COREG CR [Suspect]
     Active Substance: CARVEDILOL PHOSPHATE
     Indication: HYPERTENSION
     Dosage: 40 MG, UNK
     Route: 048
     Dates: start: 20151022

REACTIONS (4)
  - Rash generalised [Recovering/Resolving]
  - Dysphagia [Recovering/Resolving]
  - Pruritus [Recovering/Resolving]
  - Adverse reaction [Unknown]

NARRATIVE: CASE EVENT DATE: 20151022
